FAERS Safety Report 13562042 (Version 2)
Quarter: 2017Q2

REPORT INFORMATION
  Report Type: Spontaneous
  Country: US (occurrence: US)
  Receive Date: 20170518
  Receipt Date: 20170524
  Transmission Date: 20170830
  Serious: Yes (Other)
  Sender: FDA-Public Use
  Company Number: US-ALLERGAN-1719657US

PATIENT
  Age: 50 Year
  Sex: Female
  Weight: 90.7 kg

DRUGS (1)
  1. LEXAPRO [Suspect]
     Active Substance: ESCITALOPRAM OXALATE
     Indication: SLEEP TERROR
     Dosage: 20 MG, QD
     Route: 048
     Dates: start: 2007, end: 20170511

REACTIONS (5)
  - Back disorder [Recovered/Resolved]
  - Hypotension [Not Recovered/Not Resolved]
  - Syncope [Not Recovered/Not Resolved]
  - Off label use [Unknown]
  - Parkinsonism [Not Recovered/Not Resolved]

NARRATIVE: CASE EVENT DATE: 2011
